FAERS Safety Report 4654839-8 (Version None)
Quarter: 2005Q2

REPORT INFORMATION
  Report Type: 
  Country: None (occurrence: None)
  Receive Date: 20050505
  Receipt Date: 20050331
  Transmission Date: 20051028
  Serious: Yes (Death)
  Sender: FDA-Public Use
  Company Number: 2005S1001759

PATIENT
  Age: 81 Year
  Sex: Male

DRUGS (15)
  1. CLOZAPINE [Suspect]
     Dosage: 12.5 MG;QD; PO
     Route: 048
     Dates: start: 20041101, end: 20050201
  2. HYOSCINE HBR HYT [Concomitant]
  3. MORPHINE SULFATE [Concomitant]
  4. CLINDAMYCIN [Concomitant]
  5. ORICIPRENALINE [Concomitant]
  6. MOXIFLOXACIN HYDROCHLORIDE [Concomitant]
  7. ALPRAZOLAM [Concomitant]
  8. CARBIDOPA AND LEVODOPA [Concomitant]
  9. CARBIDOPA AND LEVODOPA [Concomitant]
  10. FOLIC ACID [Concomitant]
  11. LEVETIRACETAM [Concomitant]
  12. DONEPEZIL HCL [Concomitant]
  13. ACETYL SALICYLIC ACID USP BAT [Concomitant]
  14. DOCUSATE SODIUM/SENNA [Concomitant]
  15. MULTIVITAMINS, PLAIN [Concomitant]

REACTIONS (1)
  - PNEUMONIA ASPIRATION [None]
